FAERS Safety Report 25103102 (Version 2)
Quarter: 2025Q4

REPORT INFORMATION
  Report Type: Spontaneous
  Country: US (occurrence: US)
  Receive Date: 20250321
  Receipt Date: 20251217
  Transmission Date: 20260117
  Serious: Yes (Other)
  Sender: COOPERSURGICAL
  Company Number: US-COOPERSURGICAL, INC.-2025CPS001848

PATIENT
  Age: 33 Year
  Sex: Female
  Weight: 77.098 kg

DRUGS (1)
  1. PARAGARD T 380A [Suspect]
     Active Substance: COPPER
     Indication: Contraception
     Dosage: UNK
     Route: 015
     Dates: start: 20110705

REACTIONS (14)
  - Surgery [Recovered/Resolved]
  - Device breakage [Recovered/Resolved]
  - Foreign body in reproductive tract [Recovered/Resolved]
  - Complication of device removal [Recovered/Resolved]
  - Embedded device [Recovered/Resolved]
  - Anxiety [Recovered/Resolved]
  - Emotional distress [Recovered/Resolved]
  - Abdominal pain [Recovering/Resolving]
  - Pelvic pain [Recovering/Resolving]
  - Pain [Recovered/Resolved]
  - Heavy menstrual bleeding [Recovering/Resolving]
  - Dyspareunia [Recovered/Resolved]
  - Intentional device use issue [Recovered/Resolved]
  - Off label use [Unknown]

NARRATIVE: CASE EVENT DATE: 20110705
